FAERS Safety Report 20382144 (Version 7)
Quarter: 2023Q2

REPORT INFORMATION
  Report Type: Report from Study
  Country: CA (occurrence: CA)
  Receive Date: 20220127
  Receipt Date: 20230614
  Transmission Date: 20230722
  Serious: Yes (Other)
  Sender: FDA-Public Use
  Company Number: CA-BAUSCH-BL-2021-034002

PATIENT
  Age: 55 Year
  Sex: Male

DRUGS (11)
  1. SILIQ [Suspect]
     Active Substance: BRODALUMAB
     Indication: Psoriasis
     Dosage: DOSAGE: 210 MG/ 1.5 ML, WEEK 0, WEEK 1 AND WEEK 2
     Route: 058
     Dates: start: 20210929, end: 202110
  2. SILIQ [Suspect]
     Active Substance: BRODALUMAB
     Dosage: DOSAGE: 210 MG/ 1.5 ML
     Route: 058
     Dates: start: 2021
  3. SILIQ [Suspect]
     Active Substance: BRODALUMAB
     Dosage: DOSAGE: 210 MG/ 1.5 ML
     Route: 058
     Dates: start: 20230524
  4. BETAMETHASONE\CALCIPOTRIENE [Concomitant]
     Active Substance: BETAMETHASONE\CALCIPOTRIENE
     Indication: Product used for unknown indication
  5. FOLIC ACID [Concomitant]
     Active Substance: FOLIC ACID
     Indication: Product used for unknown indication
  6. JARDIANCE [Concomitant]
     Active Substance: EMPAGLIFLOZIN
     Indication: Product used for unknown indication
  7. EMPAGLIFLOZIN [Concomitant]
     Active Substance: EMPAGLIFLOZIN
     Indication: Product used for unknown indication
  8. AMLODIPINE [Concomitant]
     Active Substance: AMLODIPINE BESYLATE
     Indication: Product used for unknown indication
  9. ROSUVASTATIN [Concomitant]
     Active Substance: ROSUVASTATIN
     Indication: Product used for unknown indication
  10. ASPIRIN [Concomitant]
     Active Substance: ASPIRIN
     Indication: Product used for unknown indication
  11. RAMIPRIL [Concomitant]
     Active Substance: RAMIPRIL
     Indication: Product used for unknown indication

REACTIONS (5)
  - Hypertension [Not Recovered/Not Resolved]
  - Anxiety [Unknown]
  - Family stress [Not Recovered/Not Resolved]
  - Fatigue [Recovered/Resolved]
  - Product dose omission issue [Unknown]

NARRATIVE: CASE EVENT DATE: 20210930
